FAERS Safety Report 25173290 (Version 1)
Quarter: 2025Q2

REPORT INFORMATION
  Report Type: Spontaneous
  Country: US (occurrence: None)
  Receive Date: 20250408
  Receipt Date: 20250408
  Transmission Date: 20250717
  Serious: Yes (Other)
  Sender: FDA-CTU
  Company Number: None

PATIENT
  Age: 60 Year
  Sex: Male
  Weight: 90 kg

DRUGS (17)
  1. BREZTRI [Suspect]
     Active Substance: BUDESONIDE\FORMOTEROL\GLYCOPYRROLATE
     Indication: Bronchitis chronic
     Dosage: OTHER STRENGTH : 160MCG/9MCG/4.8MCG?OTHER QUANTITY : 2 INHALATION(S)?FREQUENCY : TWICE A DAY?
     Route: 048
     Dates: start: 20250324, end: 20250330
  2. POTASSIUM [Concomitant]
     Active Substance: POTASSIUM
  3. AZELASTINE HYDROCHLORIDE [Concomitant]
     Active Substance: AZELASTINE HYDROCHLORIDE
  4. FLUTICASONE PROPIONATE [Concomitant]
     Active Substance: FLUTICASONE PROPIONATE
  5. CALCITRIOL [Concomitant]
     Active Substance: CALCITRIOL
  6. CIMETIDINE [Concomitant]
     Active Substance: CIMETIDINE
  7. ROSUVASTATIN [Concomitant]
     Active Substance: ROSUVASTATIN
  8. FLUCONAZOLE [Concomitant]
     Active Substance: FLUCONAZOLE
  9. METAMUCIL [Concomitant]
     Active Substance: PLANTAGO SEED
  10. METAMUCIL [Concomitant]
     Active Substance: PLANTAGO SEED
  11. NABUMETONE [Concomitant]
     Active Substance: NABUMETONE
  12. COD LIVER OIL [Concomitant]
     Active Substance: COD LIVER OIL
  13. VITAMIN C [Concomitant]
     Active Substance: ASCORBIC ACID
  14. MINERALS\VITAMINS [Concomitant]
     Active Substance: MINERALS\VITAMINS
  15. MELATONIN [Concomitant]
     Active Substance: MELATONIN
  16. MAGNESIUM [Concomitant]
     Active Substance: MAGNESIUM
  17. ACETAMINOPHEN [Concomitant]
     Active Substance: ACETAMINOPHEN

REACTIONS (23)
  - Asthenia [None]
  - Fatigue [None]
  - Dizziness [None]
  - Blood glucose decreased [None]
  - Sinus pain [None]
  - Cough [None]
  - Sputum increased [None]
  - Mood altered [None]
  - Arrhythmia [None]
  - Palpitations [None]
  - Tremor [None]
  - Nasopharyngitis [None]
  - Back pain [None]
  - Influenza like illness [None]
  - Muscle spasms [None]
  - Nervousness [None]
  - Agitation [None]
  - Insomnia [None]
  - Headache [None]
  - Visual impairment [None]
  - Ocular hyperaemia [None]
  - Eye pain [None]
  - Ocular discomfort [None]

NARRATIVE: CASE EVENT DATE: 20250325
